FAERS Safety Report 11584375 (Version 1)
Quarter: 2015Q4

REPORT INFORMATION
  Report Type: Report from Study
  Country: BR (occurrence: BR)
  Receive Date: 20151001
  Receipt Date: 20151001
  Transmission Date: 20160304
  Serious: Yes (Hospitalization)
  Sender: FDA-Public Use
  Company Number: BR-BIOGENIDEC-2011BI040789

PATIENT
  Age: 42 Year
  Sex: Female

DRUGS (9)
  1. CARBAMAZEPINE. [Concomitant]
     Active Substance: CARBAMAZEPINE
     Indication: ILL-DEFINED DISORDER
     Dates: end: 201305
  2. AVONEX [Suspect]
     Active Substance: INTERFERON BETA-1A
     Indication: MULTIPLE SCLEROSIS
     Route: 030
     Dates: start: 2008, end: 201109
  3. AVONEX [Suspect]
     Active Substance: INTERFERON BETA-1A
     Indication: MULTIPLE SCLEROSIS
     Route: 030
     Dates: start: 20130201
  4. LEXOTAN [Concomitant]
     Active Substance: BROMAZEPAM
     Indication: INSOMNIA
     Dates: start: 2007
  5. AVONEX [Suspect]
     Active Substance: INTERFERON BETA-1A
     Indication: MULTIPLE SCLEROSIS
     Route: 030
  6. DEPAXAN (PAROXETINE HYDROCHLORIDE) [Concomitant]
     Indication: SEDATIVE THERAPY
  7. AVONEX [Suspect]
     Active Substance: INTERFERON BETA-1A
     Indication: MULTIPLE SCLEROSIS
     Route: 030
     Dates: start: 20111016
  8. RIVOTRIL [Concomitant]
     Active Substance: CLONAZEPAM
     Indication: INSOMNIA
     Dates: start: 2007
  9. ESCITALOPRAM [Concomitant]
     Active Substance: ESCITALOPRAM OXALATE

REACTIONS (20)
  - Pyrexia [Recovered/Resolved]
  - Peripheral swelling [Recovered/Resolved]
  - Gait disturbance [Recovered/Resolved]
  - Chills [Recovered/Resolved]
  - Diplegia [Recovered/Resolved]
  - General symptom [Unknown]
  - Mobility decreased [Not Recovered/Not Resolved]
  - Headache [Recovered/Resolved]
  - Ear pain [Unknown]
  - Swelling [Unknown]
  - Nuclear magnetic resonance imaging abnormal [Unknown]
  - Fatigue [Unknown]
  - Alopecia [Unknown]
  - Speech disorder [Recovered/Resolved]
  - Depression [Not Recovered/Not Resolved]
  - Pain in extremity [Recovered/Resolved]
  - Muscular weakness [Not Recovered/Not Resolved]
  - Pain in jaw [Recovered/Resolved]
  - Insomnia [Recovered/Resolved]
  - Visual impairment [Not Recovered/Not Resolved]

NARRATIVE: CASE EVENT DATE: 2008
